FAERS Safety Report 22920095 (Version 3)
Quarter: 2024Q3

REPORT INFORMATION
  Report Type: Report from Study
  Country: US (occurrence: US)
  Receive Date: 20230908
  Receipt Date: 20240827
  Transmission Date: 20241017
  Serious: Yes (Other)
  Sender: NOVARTIS
  Company Number: US-SANDOZ-SDZ2023US024125

PATIENT
  Age: 65 Year
  Sex: Male

DRUGS (3)
  1. ENTRESTO [Suspect]
     Active Substance: SACUBITRIL\VALSARTAN
     Indication: Product used for unknown indication
     Dosage: 24/26 MG, QD, (WAS ONLY TAKING THE ENTRESTO ONCE A DAY INSTEAD OF TWICE A DAY LIKE IT WAS PRESCRIBED
     Route: 048
     Dates: start: 202302
  2. ENTRESTO [Suspect]
     Active Substance: SACUBITRIL\VALSARTAN
     Dosage: 24/26 MG, BID
     Route: 048
  3. LOSARTAN [Suspect]
     Active Substance: LOSARTAN\LOSARTAN POTASSIUM
     Indication: Blood pressure abnormal
     Dosage: UNK
     Route: 065
     Dates: start: 2022, end: 202302

REACTIONS (9)
  - Ischaemic cardiomyopathy [Unknown]
  - Chest pain [Unknown]
  - Blood pressure systolic increased [Unknown]
  - Fatigue [Unknown]
  - Body mass index increased [Unknown]
  - Weight fluctuation [Recovering/Resolving]
  - Myalgia [Unknown]
  - Contraindicated product administered [Recovered/Resolved]
  - Inappropriate schedule of product administration [Recovered/Resolved]

NARRATIVE: CASE EVENT DATE: 20230201
